FAERS Safety Report 20798822 (Version 1)
Quarter: 2022Q2

REPORT INFORMATION
  Report Type: Spontaneous
  Country: FR (occurrence: FR)
  Receive Date: 20220507
  Receipt Date: 20220507
  Transmission Date: 20220720
  Serious: Yes (Other)
  Sender: FDA-Public Use
  Company Number: FR-AMERICAN REGENT INC-2022001227

PATIENT
  Age: 37 Year
  Sex: Female
  Weight: 53.6 kg

DRUGS (1)
  1. FERINJECT [Suspect]
     Active Substance: FERRIC CARBOXYMALTOSE
     Indication: Iron deficiency anaemia
     Dosage: 1 GM (1 GM, 1 IN 1 TOTAL)
     Route: 042
     Dates: start: 20220406, end: 20220406

REACTIONS (3)
  - Burning sensation [Recovered/Resolved]
  - Injection site erythema [Recovered/Resolved]
  - Administration site pruritus [Recovered/Resolved]

NARRATIVE: CASE EVENT DATE: 20220406
